FAERS Safety Report 12679885 (Version 1)
Quarter: 2016Q3

REPORT INFORMATION
  Report Type: Spontaneous
  Country: US (occurrence: US)
  Receive Date: 20160824
  Receipt Date: 20160824
  Transmission Date: 20161109
  Serious: No
  Sender: FDA-Public Use
  Company Number: US-JNJFOC-20160804709

PATIENT

DRUGS (1)
  1. HALDOL DECANOATE [Suspect]
     Active Substance: HALOPERIDOL DECANOATE
     Indication: PRODUCT USED FOR UNKNOWN INDICATION
     Dosage: USING 1 + 1/2 AMPULES OF 50MG TO MAKE A DOSE OF 75MG
     Route: 030

REACTIONS (3)
  - Off label use [Unknown]
  - Incorrect product storage [Unknown]
  - Wrong technique in product usage process [Unknown]
